FAERS Safety Report 23278848 (Version 3)
Quarter: 2024Q2

REPORT INFORMATION
  Report Type: Spontaneous
  Country: US (occurrence: US)
  Receive Date: 20231208
  Receipt Date: 20240403
  Transmission Date: 20240715
  Serious: No
  Sender: FDA-Public Use
  Company Number: US-Calliditas-2023CAL01539

PATIENT
  Age: 41 Year
  Sex: Male

DRUGS (1)
  1. TARPEYO [Suspect]
     Active Substance: BUDESONIDE
     Indication: IgA nephropathy
     Dosage: 16 MG (4 MG CAPSULES) ONCE DAILY
     Route: 048
     Dates: start: 20231104

REACTIONS (14)
  - Asthenia [Recovered/Resolved]
  - Fatigue [Unknown]
  - Nocturia [Recovering/Resolving]
  - Swelling face [Unknown]
  - Peripheral swelling [Unknown]
  - Heart rate increased [Unknown]
  - Proteinuria [Recovering/Resolving]
  - Blood urine present [Unknown]
  - Hyperphagia [Unknown]
  - Abdominal distension [Unknown]
  - Abdominal discomfort [Unknown]
  - Abdominal distension [Unknown]
  - Loss of personal independence in daily activities [Recovered/Resolved]
  - Cardiac discomfort [Unknown]

NARRATIVE: CASE EVENT DATE: 20231101
